FAERS Safety Report 7085348-7 (Version None)
Quarter: 2010Q4

REPORT INFORMATION
  Report Type: 
  Country: None (occurrence: None)
  Receive Date: 20101105
  Receipt Date: 20101025
  Transmission Date: 20110411
  Serious: Yes (Other)
  Sender: FDA-Public Use
  Company Number: GB-PFIZER INC-2010135198

PATIENT
  Age: 54 Year
  Sex: Male

DRUGS (1)
  1. LUSTRAL [Suspect]
     Indication: POST VIRAL FATIGUE SYNDROME
     Dosage: UNK

REACTIONS (2)
  - DRUG INEFFECTIVE FOR UNAPPROVED INDICATION [None]
  - MENTAL DISORDER [None]
